FAERS Safety Report 8311069-6 (Version None)
Quarter: 2012Q2

REPORT INFORMATION
  Report Type: 
  Country: None (occurrence: None)
  Receive Date: 20120425
  Receipt Date: 20120420
  Transmission Date: 20120825
  Serious: No
  Sender: FDA-Public Use
  Company Number: US-BIOGENIDEC-2012BI013871

PATIENT
  Sex: Female

DRUGS (2)
  1. TYSABRI [Suspect]
     Indication: MULTIPLE SCLEROSIS
     Route: 042
     Dates: start: 20070630, end: 20070922
  2. TYSABRI [Suspect]
     Route: 042
     Dates: start: 20080317

REACTIONS (2)
  - SOMNOLENCE [None]
  - FATIGUE [None]
